FAERS Safety Report 15629130 (Version 1)
Quarter: 2018Q4

REPORT INFORMATION
  Report Type: Spontaneous
  Country: US (occurrence: US)
  Receive Date: 20181116
  Receipt Date: 20181116
  Transmission Date: 20190205
  Serious: Yes (Hospitalization)
  Sender: FDA-Public Use
  Company Number: US-BIOMARINAP-US-2018-120598

PATIENT
  Age: 3 Year
  Sex: Male
  Weight: 15 kg

DRUGS (3)
  1. VALPROIC ACID. [Concomitant]
     Active Substance: VALPROIC ACID
     Indication: PRODUCT USED FOR UNKNOWN INDICATION
     Dosage: 250 MILLIGRAM, BID
  2. LEVETIRACETAM. [Concomitant]
     Active Substance: LEVETIRACETAM
     Dosage: 500 MILLIGRAM, BID
  3. BRINEURA [Suspect]
     Active Substance: CERLIPONASE ALFA
     Indication: NEURONAL CEROID LIPOFUSCINOSIS
     Dosage: 300 MILLIGRAM, QOW
     Route: 020
     Dates: start: 20181016

REACTIONS (4)
  - Muscle contractions involuntary [Recovered/Resolved]
  - Eyelid disorder [Recovered/Resolved]
  - Muscle twitching [Recovered/Resolved]
  - Seizure [Recovered/Resolved]

NARRATIVE: CASE EVENT DATE: 20181028
